FAERS Safety Report 9127541 (Version 1)
Quarter: 2013Q1

REPORT INFORMATION
  Report Type: Spontaneous
  Country: US (occurrence: US)
  Receive Date: 20130228
  Receipt Date: 20130228
  Transmission Date: 20140127
  Serious: No
  Sender: FDA-Public Use
  Company Number: US-GLAXOSMITHKLINE-A0982709A

PATIENT
  Age: 30 Year
  Sex: Male

DRUGS (5)
  1. LAMICTAL [Suspect]
     Indication: BIPOLAR DISORDER
     Route: 048
     Dates: start: 201203
  2. VISTARIL [Concomitant]
  3. TRAMADOL [Concomitant]
  4. CLONAZEPAM [Concomitant]
  5. CLARITIN [Concomitant]

REACTIONS (7)
  - Blepharospasm [Unknown]
  - Skin ulcer [Unknown]
  - Retching [Unknown]
  - Cough [Unknown]
  - Musculoskeletal stiffness [Unknown]
  - Hyperreflexia [Unknown]
  - Torticollis [Unknown]
